FAERS Safety Report 4327688-8 (Version None)
Quarter: 2004Q1

REPORT INFORMATION
  Report Type: 
  Country: None (occurrence: None)
  Receive Date: 20040331
  Receipt Date: 20030905
  Transmission Date: 20041129
  Serious: No
  Sender: FDA-Public Use
  Company Number: US-GLAXOSMITHKLINE-A0424772A

PATIENT
  Sex: Male

DRUGS (1)
  1. COMPAZINE [Suspect]
     Indication: ILL-DEFINED DISORDER
     Route: 065

REACTIONS (2)
  - AGITATION [None]
  - ANXIETY [None]
